FAERS Safety Report 17580310 (Version 1)
Quarter: 2020Q1

REPORT INFORMATION
  Report Type: Spontaneous
  Country: US (occurrence: US)
  Receive Date: 20200325
  Receipt Date: 20200325
  Transmission Date: 20200409
  Serious: No
  Sender: FDA-Public Use
  Company Number: US-GLAXOSMITHKLINE-US2020050396

PATIENT
  Sex: Female

DRUGS (1)
  1. NICODERM CQ [Suspect]
     Active Substance: NICOTINE
     Indication: SMOKING CESSATION THERAPY
     Dosage: UNK
     Dates: start: 202003, end: 20200316

REACTIONS (7)
  - Skin ulcer [Unknown]
  - Pruritus [Unknown]
  - Application site pain [Unknown]
  - Application site reaction [Unknown]
  - Scratch [Unknown]
  - Application site rash [Unknown]
  - Application site erythema [Unknown]
